FAERS Safety Report 8616859 (Version 4)
Quarter: 2012Q4

REPORT INFORMATION
  Report Type: 
  Country: US (occurrence: US)
  Receive Date: 20120615
  Receipt Date: 20121102
  Transmission Date: 20130627
  Serious: Yes (Other)
  Sender: FDA-Public Use
  Company Number: PHEH2012US000872

PATIENT
  Age: 51 None
  Sex: Female
  Weight: 134 kg

DRUGS (4)
  1. GILENYA [Suspect]
     Indication: MULTIPLE SCLEROSIS
     Dosage: 0.5 mg, QD
     Route: 048
     Dates: start: 20111229
  2. TRAZODONE [Suspect]
  3. NASONEX [Concomitant]
     Dosage: 50 ug, UNK
  4. SIMVASTATIN [Concomitant]
     Dosage: 10 mg, UNK

REACTIONS (14)
  - Hallucination [Unknown]
  - Visual impairment [Not Recovered/Not Resolved]
  - Palpitations [Recovered/Resolved]
  - Insomnia [Not Recovered/Not Resolved]
  - Local swelling [Not Recovered/Not Resolved]
  - Pain in extremity [Not Recovered/Not Resolved]
  - Dry skin [Unknown]
  - Depression [Not Recovered/Not Resolved]
  - Mood altered [Unknown]
  - Viral infection [Unknown]
  - Nasal congestion [Recovered/Resolved]
  - Chills [Unknown]
  - Liver function test abnormal [Recovered/Resolved]
  - Pruritus [Unknown]
